FAERS Safety Report 4384480-6 (Version None)
Quarter: 2004Q2

REPORT INFORMATION
  Report Type: 
  Country: None (occurrence: None)
  Receive Date: 20040607
  Receipt Date: 20030804
  Transmission Date: 20050107
  Serious: Yes (Other)
  Sender: FDA-Public Use
  Company Number: 344055

PATIENT

DRUGS (2)
  1. ROACUTANE (ISOTRETINOIN) 20 MG [Suspect]
     Indication: DEVELOPMENTAL DELAY
     Dosage: 20 MG DAILY ORAL
     Route: 048
     Dates: start: 20030526, end: 20030723
  2. MARVELON (DESOGESTREL/ETHINYL ESTRADIOL) [Concomitant]

REACTIONS (3)
  - NO ADVERSE DRUG EFFECT [None]
  - NO ADVERSE EFFECT [None]
  - PREGNANCY [None]
